FAERS Safety Report 5113480-3 (Version None)
Quarter: 2006Q3

REPORT INFORMATION
  Report Type: 
  Country: None (occurrence: None)
  Receive Date: 20060920
  Receipt Date: 20060905
  Transmission Date: 20061208
  Serious: Yes (Hospitalization, Other)
  Sender: FDA-Public Use
  Company Number: 02100-JPN-05-0083

PATIENT
  Age: 80 Year
  Sex: Male

DRUGS (6)
  1. CILOSTAZOL [Suspect]
     Indication: LACUNAR INFARCTION
     Dosage: 200 MG ORAL
     Route: 048
     Dates: start: 20040625, end: 20050313
  2. CILOSTAZOL [Suspect]
     Indication: LACUNAR INFARCTION
     Dosage: 200 MG ORAL
     Route: 048
     Dates: start: 20050418
  3. HUMAN INSULIN (GENETICAL RECOMBINATION) [Concomitant]
  4. TIAPRIDE HYDROCHLORIDE [Concomitant]
  5. DROXIDOPA [Concomitant]
  6. CETIRIZINE HCL [Concomitant]

REACTIONS (15)
  - BRAIN NATRIURETIC PEPTIDE INCREASED [None]
  - CARDIAC FAILURE ACUTE [None]
  - DIABETES MELLITUS INADEQUATE CONTROL [None]
  - DIABETIC COMPLICATION [None]
  - DIARRHOEA [None]
  - EXOCRINE PANCREATIC FUNCTION TEST ABNORMAL [None]
  - GASTROINTESTINAL DISORDER [None]
  - HEART RATE INCREASED [None]
  - HYPOKALAEMIA [None]
  - INFLAMMATION [None]
  - INFLUENZA [None]
  - OXYGEN SATURATION DECREASED [None]
  - PULMONARY VASCULAR DISORDER [None]
  - RASH [None]
  - VENTRICULAR EXTRASYSTOLES [None]
